FAERS Safety Report 11395244 (Version 1)
Quarter: 2015Q3

REPORT INFORMATION
  Report Type: Spontaneous
  Country: US (occurrence: None)
  Receive Date: 20150817
  Receipt Date: 20150817
  Transmission Date: 20151125
  Serious: No
  Sender: FDA-Public Use
  Company Number: None

PATIENT
  Age: 56 Year
  Sex: Female

DRUGS (12)
  1. TECFIDERA [Suspect]
     Active Substance: DIMETHYL FUMARATE
     Indication: MULTIPLE SCLEROSIS
     Route: 048
     Dates: start: 20150730, end: 20150814
  2. LANTUS [Concomitant]
     Active Substance: INSULIN GLARGINE
  3. HYDROXYCHLOROQUINE [Concomitant]
     Active Substance: HYDROXYCHLOROQUINE
  4. FLUOXETINE [Concomitant]
     Active Substance: FLUOXETINE\FLUOXETINE HYDROCHLORIDE
  5. METFORMIN [Concomitant]
     Active Substance: METFORMIN HYDROCHLORIDE
  6. ATORVASTATIN [Concomitant]
     Active Substance: ATORVASTATIN
  7. ATENOLOL. [Concomitant]
     Active Substance: ATENOLOL
  8. HUMALOG [Concomitant]
     Active Substance: INSULIN LISPRO
  9. INVOKANA [Concomitant]
     Active Substance: CANAGLIFLOZIN
  10. AMPYRA [Concomitant]
     Active Substance: DALFAMPRIDINE
  11. MELOXICAM. [Concomitant]
     Active Substance: MELOXICAM
  12. ALPRAZOLAM. [Concomitant]
     Active Substance: ALPRAZOLAM

REACTIONS (1)
  - Memory impairment [None]

NARRATIVE: CASE EVENT DATE: 20150803
